FAERS Safety Report 4745883-0 (Version None)
Quarter: 2005Q3

REPORT INFORMATION
  Report Type: 
  Country: None (occurrence: None)
  Receive Date: 20050816
  Receipt Date: 20050809
  Transmission Date: 20060218
  Serious: Yes (Hospitalization)
  Sender: FDA-Public Use
  Company Number: US-SANOFI-SYNTHELABO-A03200502444

PATIENT
  Sex: Male

DRUGS (2)
  1. PLAQUENIL [Suspect]
     Indication: SARCOIDOSIS
     Dosage: UNK
     Route: 048
     Dates: start: 20050101, end: 20050201
  2. TESTOSTERONE [Concomitant]
     Indication: BLOOD TESTOSTERONE DECREASED
     Dosage: UNK
     Route: 065

REACTIONS (5)
  - BACTERIAL INFECTION [None]
  - INFECTION [None]
  - RESPIRATORY DISORDER [None]
  - SKIN INFECTION [None]
  - VIRAL INFECTION [None]
